FAERS Safety Report 22651468 (Version 1)
Quarter: 2023Q2

REPORT INFORMATION
  Report Type: Spontaneous
  Country: US (occurrence: None)
  Receive Date: 20230627
  Receipt Date: 20230627
  Transmission Date: 20230722
  Serious: Yes (Hospitalization)
  Sender: FDA-Public Use
  Company Number: None

PATIENT
  Age: 26 Year
  Sex: Female
  Weight: 133.2 kg

DRUGS (6)
  1. SUBOXONE [Suspect]
     Active Substance: BUPRENORPHINE HYDROCHLORIDE\NALOXONE HYDROCHLORIDE
     Dosage: OTHER QUANTITY : 0.5 FILM;?FREQUENCY : DAILY;?
     Route: 060
     Dates: end: 20230614
  2. GABAPENTIN [Concomitant]
     Active Substance: GABAPENTIN
  3. ZOLOFT [Concomitant]
     Active Substance: SERTRALINE HYDROCHLORIDE
  4. BUSPIRONE [Concomitant]
     Active Substance: BUSPIRONE HYDROCHLORIDE
  5. ZANAFLEX [Concomitant]
     Active Substance: TIZANIDINE HYDROCHLORIDE
  6. THC- CBD gummies [Concomitant]

REACTIONS (7)
  - Drug withdrawal syndrome neonatal [None]
  - Maternal exposure during pregnancy [None]
  - Maternal drugs affecting foetus [None]
  - Foetal exposure timing unspecified [None]
  - Pulmonary oedema [None]
  - Dyspnoea [None]
  - Drug withdrawal syndrome [None]

NARRATIVE: CASE EVENT DATE: 20230618
